FAERS Safety Report 25451411 (Version 1)
Quarter: 2025Q2

REPORT INFORMATION
  Report Type: Spontaneous
  Country: AR (occurrence: AR)
  Receive Date: 20250618
  Receipt Date: 20250618
  Transmission Date: 20250717
  Serious: Yes (Hospitalization, Other)
  Sender: EMD SERONO INC
  Company Number: AR-Merck S.A.-2025029531

PATIENT
  Age: 77 Year
  Sex: Male

DRUGS (1)
  1. BAVENCIO [Suspect]
     Active Substance: AVELUMAB
     Indication: Bladder cancer

REACTIONS (3)
  - Dropped head syndrome [Unknown]
  - Blood creatine phosphokinase increased [Unknown]
  - Myositis [Unknown]
